FAERS Safety Report 25497486 (Version 1)
Quarter: 2025Q3

REPORT INFORMATION
  Report Type: Spontaneous
  Country: EU (occurrence: EU)
  Receive Date: 20250701
  Receipt Date: 20250701
  Transmission Date: 20251021
  Serious: Yes (Other)
  Sender: RANBAXY
  Company Number: EU-SUN PHARMACEUTICAL INDUSTRIES LTD-2025RR-513586

PATIENT
  Age: 18 Year
  Sex: Female
  Weight: 115 kg

DRUGS (3)
  1. OLANZAPINE [Suspect]
     Active Substance: OLANZAPINE
     Indication: Family stress
     Route: 065
     Dates: start: 20150801, end: 20250307
  2. ARIPIPRAZOLE [Suspect]
     Active Substance: ARIPIPRAZOLE
     Indication: Family stress
     Route: 065
     Dates: start: 20150801, end: 20250307
  3. DIAZEPAM [Suspect]
     Active Substance: DIAZEPAM
     Indication: Family stress
     Route: 040
     Dates: start: 20150801, end: 20250307

REACTIONS (1)
  - Blindness [Recovered/Resolved]

NARRATIVE: CASE EVENT DATE: 20150801
